FAERS Safety Report 13889181 (Version 1)
Quarter: 2017Q3

REPORT INFORMATION
  Report Type: Spontaneous
  Country: US (occurrence: US)
  Receive Date: 20170816
  Receipt Date: 20170816
  Transmission Date: 20171127
  Serious: Yes (Disabling)
  Sender: FDA-Public Use
  Company Number: None

PATIENT
  Age: 45 Year
  Sex: Male
  Weight: 81 kg

DRUGS (2)
  1. ISSENTRESS [Concomitant]
  2. DESCOVY [Suspect]
     Active Substance: EMTRICITABINE\TENOFOVIR ALAFENAMIDE FUMARATE
     Indication: HIV INFECTION
     Dosage: ?          QUANTITY:1 TABLET(S); DAILY ORAL?
     Route: 048
     Dates: start: 20160701

REACTIONS (4)
  - Blood cholesterol abnormal [None]
  - Blood triglycerides increased [None]
  - Blood glucose increased [None]
  - Condition aggravated [None]

NARRATIVE: CASE EVENT DATE: 20170811
